FAERS Safety Report 8919586 (Version 1)
Quarter: 2012Q4

REPORT INFORMATION
  Report Type: 
  Country: US (occurrence: US)
  Receive Date: 20121121
  Receipt Date: 20121121
  Transmission Date: 20130627
  Serious: No
  Sender: FDA-Public Use
  Company Number: US-009507513-1211USA008074

PATIENT
  Age: 8 Year
  Sex: Male

DRUGS (2)
  1. CLARITIN LIQUIGELS [Suspect]
     Indication: PRODUCT USED FOR UNKNOWN INDICATION
     Dosage: UNK, qpm
     Route: 048
     Dates: start: 20120920
  2. CLARITIN LIQUIGELS [Suspect]
     Dosage: UNK, Unknown
     Route: 048
     Dates: start: 20120921

REACTIONS (1)
  - Overdose [Unknown]
